FAERS Safety Report 7951950-0 (Version None)
Quarter: 2011Q4

REPORT INFORMATION
  Report Type: 
  Country: None (occurrence: None)
  Receive Date: 20111201
  Receipt Date: 20111125
  Transmission Date: 20120403
  Serious: Yes (Other)
  Sender: FDA-Public Use
  Company Number: RU-PFIZER INC-2011282601

PATIENT
  Age: 68 Year
  Sex: Female

DRUGS (1)
  1. XALATAN [Suspect]
     Indication: OPEN ANGLE GLAUCOMA
     Dosage: 1 DROP INTO EACH EYE, 1X/DAY, IN THE EVENING
     Route: 047
     Dates: start: 20101201

REACTIONS (2)
  - INTRAOCULAR PRESSURE INCREASED [None]
  - DRUG EFFECT DECREASED [None]
